FAERS Safety Report 12505734 (Version 1)
Quarter: 2016Q2

REPORT INFORMATION
  Report Type: Spontaneous
  Country: AU (occurrence: AU)
  Receive Date: 20160628
  Receipt Date: 20160628
  Transmission Date: 20160815
  Serious: Yes (Other)
  Sender: FDA-Public Use
  Company Number: AU-PFIZER INC-2016318393

PATIENT
  Age: 25 Year
  Sex: Female

DRUGS (6)
  1. PREDNISOLONE. [Interacting]
     Active Substance: PREDNISOLONE
     Dosage: UNK
  2. ZOLPIDEM [Interacting]
     Active Substance: ZOLPIDEM\ZOLPIDEM TARTRATE
     Indication: SOCIAL PROBLEM
  3. ALPRAZOLAM. [Interacting]
     Active Substance: ALPRAZOLAM
     Dosage: UNK
  4. SERTRALINE HCL [Suspect]
     Active Substance: SERTRALINE HYDROCHLORIDE
     Indication: ANTIDEPRESSANT THERAPY
     Dosage: UNK
  5. ZOLPIDEM [Interacting]
     Active Substance: ZOLPIDEM\ZOLPIDEM TARTRATE
     Indication: MALAISE
     Dosage: UNK
  6. OESTROGEN [Concomitant]
     Dosage: UNK

REACTIONS (3)
  - Drug interaction [Unknown]
  - Delirium [Unknown]
  - Mania [Unknown]
